FAERS Safety Report 7400364-0 (Version None)
Quarter: 2011Q2

REPORT INFORMATION
  Report Type: 
  Country: None (occurrence: None)
  Receive Date: 20110407
  Receipt Date: 20110329
  Transmission Date: 20111010
  Serious: Yes (Hospitalization, Other)
  Sender: FDA-Public Use
  Company Number: US-MERCK-1001USA00052

PATIENT
  Age: 61 Year
  Sex: Female

DRUGS (6)
  1. FOSAMAX [Suspect]
     Route: 048
     Dates: start: 20080206, end: 20091010
  2. FOSAMAX [Suspect]
     Route: 048
     Dates: start: 20080206, end: 20091010
  3. FOSAMAX PLUS D [Suspect]
     Indication: OSTEOPOROSIS
     Route: 048
     Dates: start: 20050501, end: 20090225
  4. FOSAMAX PLUS D [Suspect]
     Indication: OSTEOPENIA
     Route: 048
     Dates: start: 20050501, end: 20090225
  5. FOSAMAX [Suspect]
     Indication: OSTEOPOROSIS
     Route: 048
     Dates: start: 19980101, end: 20050401
  6. FOSAMAX [Suspect]
     Indication: OSTEOPENIA
     Route: 048
     Dates: start: 19980101, end: 20050401

REACTIONS (37)
  - FEMUR FRACTURE [None]
  - INTERVERTEBRAL DISC PROTRUSION [None]
  - ABDOMINAL PAIN LOWER [None]
  - CYSTOCELE [None]
  - VOMITING [None]
  - RECTOCELE [None]
  - ARTHRALGIA [None]
  - BENIGN NEOPLASM OF THYROID GLAND [None]
  - GOITRE [None]
  - MUSCULAR WEAKNESS [None]
  - LIMB INJURY [None]
  - MUSCLE SPASMS [None]
  - STRESS URINARY INCONTINENCE [None]
  - FRACTURE DELAYED UNION [None]
  - BACK PAIN [None]
  - FALL [None]
  - LOW TURNOVER OSTEOPATHY [None]
  - JOINT STIFFNESS [None]
  - URINARY TRACT INFECTION [None]
  - FATIGUE [None]
  - HYPERLIPIDAEMIA [None]
  - INTERVERTEBRAL DISC DEGENERATION [None]
  - PSEUDARTHROSIS [None]
  - OPEN WOUND [None]
  - SCIATICA [None]
  - ONYCHOMYCOSIS [None]
  - NAUSEA [None]
  - GASTROOESOPHAGEAL REFLUX DISEASE [None]
  - BLOOD GLUCOSE INCREASED [None]
  - OSTEOARTHRITIS [None]
  - ARTHROPATHY [None]
  - HYPERTENSION [None]
  - LACERATION [None]
  - PUBIS FRACTURE [None]
  - PAIN IN EXTREMITY [None]
  - HYPOKALAEMIA [None]
  - DIARRHOEA [None]
